FAERS Safety Report 9244997 (Version 2)
Quarter: 2013Q2

REPORT INFORMATION
  Report Type: Spontaneous
  Country: CN (occurrence: CN)
  Receive Date: 20130422
  Receipt Date: 20130426
  Transmission Date: 20140414
  Serious: Yes (Death, Life-Threatening)
  Sender: FDA-Public Use
  Company Number: CN-JNJFOC-20130410814

PATIENT
  Sex: 0

DRUGS (3)
  1. ITRACONAZOLE [Suspect]
     Indication: ANTIFUNGAL PROPHYLAXIS
     Dosage: BEGAN 1 DAY BEFORE OR AT LEAST 48 HOURS AFTER COMPLETING CONDITIONING REGIMEN
     Route: 042
  2. CYCLOSPORINE A [Interacting]
     Indication: IMMUNOSUPPRESSION
     Route: 042
  3. CYCLOSPORINE A [Interacting]
     Indication: IMMUNOSUPPRESSION
     Route: 042

REACTIONS (4)
  - Nervous system disorder [Fatal]
  - Drug interaction [Fatal]
  - Acute hepatic failure [Fatal]
  - Renal failure acute [Fatal]
